FAERS Safety Report 17112588 (Version 1)
Quarter: 2019Q4

REPORT INFORMATION
  Report Type: Spontaneous
  Country: DE (occurrence: DE)
  Receive Date: 20191204
  Receipt Date: 20191204
  Transmission Date: 20200122
  Serious: Yes (Hospitalization)
  Sender: FDA-Public Use
  Company Number: NVSC2019DE053893

PATIENT
  Sex: Female

DRUGS (1)
  1. DOXYCYCLIN 100 - 1 A PHARMA [Suspect]
     Active Substance: DOXYCYCLINE
     Indication: BREAST INFLAMMATION
     Dosage: 1 DF, QD
     Route: 065
     Dates: start: 20191121

REACTIONS (5)
  - Paraesthesia [Unknown]
  - Dry mouth [Unknown]
  - Erythema [Unknown]
  - Ageusia [Unknown]
  - Pain in extremity [Unknown]

NARRATIVE: CASE EVENT DATE: 201911
